FAERS Safety Report 7415368-1 (Version None)
Quarter: 2011Q2

REPORT INFORMATION
  Report Type: 
  Country: None (occurrence: None)
  Receive Date: 20110414
  Receipt Date: 20101213
  Transmission Date: 20111010
  Serious: Yes (Death)
  Sender: FDA-Public Use
  Company Number: B0689973A

PATIENT
  Sex: Male
  Weight: 66 kg

DRUGS (29)
  1. ALKERAN [Suspect]
     Indication: STEM CELL TRANSPLANT
     Dosage: 130MG PER DAY
     Route: 042
     Dates: start: 20020212, end: 20020213
  2. DALACIN [Suspect]
     Dosage: 1200MG PER DAY
     Route: 042
     Dates: start: 20020225, end: 20020304
  3. PANSPORIN [Concomitant]
     Dosage: 1G PER DAY
     Dates: start: 20020220, end: 20020221
  4. WINCEF [Concomitant]
     Dosage: 2G PER DAY
     Route: 042
     Dates: start: 20020221, end: 20020224
  5. GLEEVEC [Concomitant]
     Dosage: 600MG PER DAY
     Route: 048
     Dates: start: 20020104, end: 20020207
  6. PRIMPERAN TAB [Concomitant]
     Dosage: 10MG PER DAY
     Route: 048
     Dates: start: 20011228, end: 20020301
  7. SELBEX [Concomitant]
     Dosage: 150MG PER DAY
     Dates: start: 20011228, end: 20020321
  8. CYCLOSPORINE [Concomitant]
     Indication: IMMUNOSUPPRESSION
     Dosage: 240MG PER DAY
     Route: 065
     Dates: start: 20020214, end: 20020301
  9. CEFACLOR [Concomitant]
     Route: 048
     Dates: start: 20020107, end: 20020110
  10. URSO 250 [Concomitant]
     Dosage: 600MG PER DAY
     Route: 048
     Dates: start: 20020212, end: 20020321
  11. FUNGIZONE [Concomitant]
     Dosage: 12ML PER DAY
     Route: 048
     Dates: start: 20020212, end: 20020214
  12. ULCERLMIN [Concomitant]
     Dosage: 3G PER DAY
     Route: 048
     Dates: start: 20020214, end: 20020215
  13. POLYMYXIN-B-SULFATE [Concomitant]
     Dosage: 3IU6 PER DAY
     Route: 048
     Dates: start: 20020228, end: 20020307
  14. GLAKAY [Concomitant]
     Dosage: 45MG PER DAY
     Route: 048
     Dates: start: 20020311, end: 20020314
  15. FOSMICIN-S [Concomitant]
     Dosage: 4G PER DAY
     Route: 042
     Dates: start: 20020310, end: 20020314
  16. ZOVIRAX [Concomitant]
     Dosage: 1000MG PER DAY
     Route: 048
     Dates: start: 20020208, end: 20020305
  17. PANSPORIN [Concomitant]
     Dosage: 2G PER DAY
     Dates: start: 20020307, end: 20020310
  18. FOSCAVIR [Concomitant]
     Dosage: 525MG PER DAY
     Route: 042
     Dates: start: 20020312, end: 20020321
  19. URSO 250 [Concomitant]
     Dosage: 300MG PER DAY
     Route: 048
     Dates: start: 20020208, end: 20020211
  20. NYSTATIN [Concomitant]
     Dosage: 3IU6 PER DAY
     Route: 048
     Dates: start: 20020208, end: 20020321
  21. GASTER D [Concomitant]
     Dosage: 20MG PER DAY
     Route: 048
     Dates: start: 20020215, end: 20020301
  22. MEROPEN [Concomitant]
     Dosage: 1G PER DAY
     Route: 042
     Dates: start: 20020224, end: 20020225
  23. AZACTAM [Suspect]
     Dosage: 4G PER DAY
     Dates: start: 20020225, end: 20020304
  24. BUSULFAN [Concomitant]
     Indication: STEM CELL TRANSPLANT
     Dosage: 70MG PER DAY
     Route: 048
     Dates: start: 20020208, end: 20020211
  25. GLEEVEC [Concomitant]
     Dosage: 400MG PER DAY
     Route: 048
     Dates: start: 20011228, end: 20020103
  26. DEPAKENE [Concomitant]
     Dosage: 1200MG PER DAY
     Route: 048
     Dates: start: 20020207, end: 20020214
  27. KANAMYCIN [Concomitant]
     Dosage: 1500MG PER DAY
     Route: 048
     Dates: start: 20020208, end: 20020228
  28. FOSCAVIR [Concomitant]
     Dosage: 525MG PER DAY
     Route: 042
     Dates: start: 20020305, end: 20020310
  29. CYCLOSPORINE [Concomitant]
     Dosage: 450MG PER DAY
     Route: 065
     Dates: start: 20020316, end: 20020321

REACTIONS (3)
  - BRAIN STEM HAEMORRHAGE [None]
  - SEPTIC EMBOLUS [None]
  - ARRHYTHMIA [None]
